FAERS Safety Report 14772931 (Version 2)
Quarter: 2018Q2

REPORT INFORMATION
  Report Type: Spontaneous
  Country: US (occurrence: US)
  Receive Date: 20180418
  Receipt Date: 20180420
  Transmission Date: 20180711
  Serious: Yes (Hospitalization, Other)
  Sender: FDA-Public Use
  Company Number: US-PFIZER INC-2018156779

PATIENT
  Age: 52 Year
  Sex: Female
  Weight: 48 kg

DRUGS (5)
  1. GENGRAF [Concomitant]
     Active Substance: CYCLOSPORINE
     Dosage: UNK
     Dates: end: 201804
  2. VORICONAZOLE. [Suspect]
     Active Substance: VORICONAZOLE
     Dosage: 200 MG, DAILY
     Dates: start: 201702
  3. VORICONAZOLE. [Suspect]
     Active Substance: VORICONAZOLE
     Dosage: 200 MG, 1X/DAY
     Dates: start: 201802, end: 201804
  4. ACYCLOVIR. [Concomitant]
     Active Substance: ACYCLOVIR
     Dosage: UNK
     Dates: end: 201804
  5. ATOVAQUONE. [Concomitant]
     Active Substance: ATOVAQUONE
     Dosage: 10 ML, DAILY
     Dates: end: 201804

REACTIONS (4)
  - Visual impairment [Recovering/Resolving]
  - Astigmatism [Unknown]
  - Balance disorder [Not Recovered/Not Resolved]
  - Aplastic anaemia [Unknown]

NARRATIVE: CASE EVENT DATE: 201803
